FAERS Safety Report 7605424-7 (Version None)
Quarter: 2011Q3

REPORT INFORMATION
  Report Type: 
  Country: None (occurrence: None)
  Receive Date: 20110713
  Receipt Date: 20110706
  Transmission Date: 20111222
  Serious: Yes (Death, Hospitalization, Other)
  Sender: FDA-Public Use
  Company Number: AU-CEPHALON-2011003384

PATIENT
  Sex: Male
  Weight: 72 kg

DRUGS (6)
  1. IRBESARTAN + HYDROCHLOROTHIAZIDE [Concomitant]
     Dates: start: 19900101, end: 20110612
  2. ACETAMINOPHEN [Concomitant]
     Dates: start: 20100101
  3. BENDAMUSTINE HCL [Suspect]
     Indication: NON-HODGKIN'S LYMPHOMA
     Route: 042
     Dates: start: 20101206, end: 20110602
  4. RITUXIMAB [Suspect]
     Indication: NON-HODGKIN'S LYMPHOMA
     Route: 042
     Dates: start: 20101206, end: 20110601
  5. ALLOPURINOL [Concomitant]
     Dates: start: 19800101, end: 20110612
  6. MAXOLON [Concomitant]
     Dates: start: 20100101, end: 20110612

REACTIONS (1)
  - HYPOXIA [None]
